FAERS Safety Report 18335870 (Version 2)
Quarter: 2020Q4

REPORT INFORMATION
  Report Type: Spontaneous
  Country: US (occurrence: US)
  Receive Date: 20201001
  Receipt Date: 20201201
  Transmission Date: 20210113
  Serious: Yes (Other)
  Sender: FDA-Public Use
  Company Number: US-ABBVIE-20K-163-3587279-00

PATIENT
  Sex: Female
  Weight: 104.42 kg

DRUGS (2)
  1. HUMIRA [Suspect]
     Active Substance: ADALIMUMAB
     Indication: HIDRADENITIS
     Route: 058
     Dates: start: 201807, end: 202008
  2. WELLBUTRIN [Concomitant]
     Active Substance: BUPROPION HYDROCHLORIDE
     Indication: DEPRESSION

REACTIONS (20)
  - Polycystic ovaries [Not Recovered/Not Resolved]
  - Deafness [Not Recovered/Not Resolved]
  - Tinnitus [Not Recovered/Not Resolved]
  - Skin disorder [Not Recovered/Not Resolved]
  - Feeding disorder [Recovering/Resolving]
  - Cholelithiasis [Recovered/Resolved]
  - Immune system disorder [Not Recovered/Not Resolved]
  - Gastric disorder [Recovering/Resolving]
  - Drug ineffective [Not Recovered/Not Resolved]
  - Nausea [Recovering/Resolving]
  - Gastritis [Unknown]
  - Weight loss poor [Unknown]
  - Vomiting [Recovering/Resolving]
  - Diarrhoea [Recovering/Resolving]
  - Hypertension [Recovered/Resolved]
  - Migraine [Recovered/Resolved]
  - Dyspepsia [Recovering/Resolving]
  - Oesophagitis [Unknown]
  - Mental disorder [Recovered/Resolved]
  - Hidradenitis [Not Recovered/Not Resolved]

NARRATIVE: CASE EVENT DATE: 2018
